FAERS Safety Report 7867429-0 (Version None)
Quarter: 2011Q4

REPORT INFORMATION
  Report Type: 
  Country: None (occurrence: None)
  Receive Date: 20111028
  Receipt Date: 20111026
  Transmission Date: 20120403
  Serious: Yes (Hospitalization)
  Sender: FDA-Public Use
  Company Number: DE-MERCK-1110DEU00080

PATIENT
  Age: 55 Year
  Sex: Female
  Weight: 74 kg

DRUGS (2)
  1. COZAAR [Suspect]
     Route: 048
     Dates: start: 20110601, end: 20110901
  2. IODINE [Concomitant]
     Route: 048

REACTIONS (4)
  - PALPITATIONS [None]
  - GLOSSODYNIA [None]
  - SALIVA ALTERED [None]
  - BLOOD PRESSURE INCREASED [None]
